FAERS Safety Report 4409510-4 (Version None)
Quarter: 2004Q3

REPORT INFORMATION
  Report Type: 
  Country: None (occurrence: None)
  Receive Date: 20040723
  Receipt Date: 20040710
  Transmission Date: 20050211
  Serious: Yes (Disabling)
  Sender: FDA-Public Use
  Company Number: 2004031217

PATIENT
  Sex: Female

DRUGS (9)
  1. LIPITOR [Suspect]
     Indication: BLOOD CHOLESTEROL INCREASED
  2. LIPITOR [Suspect]
     Indication: LIPIDS INCREASED
  3. FENOFIBRATE [Suspect]
     Indication: ILL-DEFINED DISORDER
     Dates: start: 20020110
  4. SIMVASTATIN [Suspect]
     Indication: ILL-DEFINED DISORDER
  5. CONJUGATED ESTROGENS [Concomitant]
  6. LEVOTHYROXINE SODIUM [Concomitant]
  7. TRANDOLAPRIL (TRANDOLAPRIL) [Concomitant]
  8. WARFARIN (WARFARIN) [Concomitant]
  9. DYAZIDE [Concomitant]

REACTIONS (9)
  - ABASIA [None]
  - ACTIVITIES OF DAILY LIVING IMPAIRED [None]
  - ASTHENIA [None]
  - BLOOD CREATINE PHOSPHOKINASE INCREASED [None]
  - CEREBROVASCULAR ACCIDENT [None]
  - DIFFICULTY IN WALKING [None]
  - PAIN [None]
  - SWELLING [None]
  - WHEELCHAIR USER [None]
